FAERS Safety Report 17636358 (Version 1)
Quarter: 2020Q2

REPORT INFORMATION
  Report Type: Spontaneous
  Country: HU (occurrence: HU)
  Receive Date: 20200407
  Receipt Date: 20200407
  Transmission Date: 20200713
  Serious: Yes (Other)
  Sender: FDA-Public Use
  Company Number: HU-AMERICAN REGENT INC-2020000820

PATIENT
  Age: 34 Year
  Sex: Male

DRUGS (1)
  1. FERINJECT [Suspect]
     Active Substance: FERRIC CARBOXYMALTOSE
     Indication: PRODUCT USED FOR UNKNOWN INDICATION
     Dosage: 1 AMPOULE (500 MG, 1 TOTAL)
     Dates: start: 20200111, end: 20200111

REACTIONS (2)
  - Thrombophlebitis [Recovered/Resolved]
  - Injected limb mobility decreased [Unknown]

NARRATIVE: CASE EVENT DATE: 2020
